FAERS Safety Report 7501346-0 (Version None)
Quarter: 2011Q2

REPORT INFORMATION
  Report Type: 
  Country: None (occurrence: None)
  Receive Date: 20110524
  Receipt Date: 20110509
  Transmission Date: 20111010
  Serious: Yes (Other)
  Sender: FDA-Public Use
  Company Number: US-GENENTECH-305687

PATIENT

DRUGS (4)
  1. RITUXIMAB [Suspect]
     Indication: NON-HODGKIN'S LYMPHOMA
     Dosage: 375 MG/M2, 1/WEEK
     Route: 042
  2. LENALIDOMIDE [Suspect]
     Indication: NON-HODGKIN'S LYMPHOMA
     Dosage: UNK
     Route: 048
  3. RITUXIMAB [Suspect]
     Dosage: 375 MG/M2, 1/WEEK
     Route: 042
  4. DEXAMETHASONE [Suspect]
     Indication: NON-HODGKIN'S LYMPHOMA
     Dosage: 8 MG, 1/WEEK
     Route: 048

REACTIONS (4)
  - HYPOPHOSPHATAEMIA [None]
  - HYPOKALAEMIA [None]
  - RASH [None]
  - HYPOCALCAEMIA [None]
